FAERS Safety Report 8070827-6 (Version None)
Quarter: 2012Q1

REPORT INFORMATION
  Report Type: 
  Country: None (occurrence: None)
  Receive Date: 20120125
  Receipt Date: 20120123
  Transmission Date: 20120608
  Serious: Yes (Other)
  Sender: FDA-Public Use
  Company Number: US-GLAXOSMITHKLINE-A0962713A

PATIENT
  Age: 73 Year
  Sex: Male

DRUGS (7)
  1. ZETIA [Concomitant]
  2. INDOMETHACIN [Concomitant]
  3. FISH OIL [Concomitant]
  4. MULTIPLE VITAMIN [Concomitant]
  5. ADVAIR DISKUS 100/50 [Suspect]
     Indication: ASTHMA
     Dosage: 1PUFF TWICE PER DAY
     Route: 055
     Dates: start: 20000101
  6. LEVOTHYROXINE SODIUM [Concomitant]
  7. VITAMIN E [Concomitant]

REACTIONS (1)
  - ASTHMA [None]
